FAERS Safety Report 11290556 (Version 2)
Quarter: 2015Q3

REPORT INFORMATION
  Report Type: Report from Study
  Country: JP (occurrence: None)
  Receive Date: 20150720
  Receipt Date: 20150811
  Transmission Date: 20151125
  Serious: Yes (Death)
  Sender: FDA-Public Use
  Company Number: 2014FE02943

PATIENT
  Age: 76 Year
  Sex: Male
  Weight: 64 kg

DRUGS (7)
  1. MADOPAR (BENSERAZIDE HYDROCHLORIDE, LEVODOPA) [Concomitant]
  2. GLIMEPIRIDE (GLIMEPIRIDE) [Concomitant]
     Active Substance: GLIMEPIRIDE
  3. BLOPRESS (CANDESARTAN CILEXETIL) [Concomitant]
     Active Substance: CANDESARTAN CILEXETIL
  4. DEGARELIX (DEGARELIX) POWDER AND SOLVENT FOR SOLUTION FOR INJECTION [Suspect]
     Active Substance: DEGARELIX
     Indication: PROSTATE CANCER
     Dosage: ONCE/SINGLE
     Route: 058
     Dates: start: 20130418, end: 20130418
  5. YOKUKANSAN (ANGELICA ACUTILOBA ROOT, ATRACTYLODES LANCEA RHIZOME, BUPLEURUM FALCATUM ROOT, CNIDIUM OFFICINALE RHIZOME, GLYCYRRHIZA SPP. ROOT, PORIA COCOS SCLEROTIUM, UNCARIA SPP. HOOK) [Concomitant]
  6. CRESTOR [Concomitant]
     Active Substance: ROSUVASTATIN CALCIUM
  7. ARICEPT [Concomitant]
     Active Substance: DONEPEZIL HYDROCHLORIDE

REACTIONS (7)
  - Injection site pain [None]
  - Intentional product misuse [None]
  - Dysphagia [None]
  - Incorrect drug dosage form administered [None]
  - Aspiration [None]
  - Intentional product use issue [None]
  - Respiratory arrest [None]

NARRATIVE: CASE EVENT DATE: 20130418
